FAERS Safety Report 6115308-1 (Version None)
Quarter: 2009Q1

REPORT INFORMATION
  Report Type: 
  Country: None (occurrence: None)
  Receive Date: 20090313
  Receipt Date: 20090306
  Transmission Date: 20090719
  Serious: Yes (Death, Life-Threatening)
  Sender: FDA-Public Use
  Company Number: GR-ROCHE-615595

PATIENT
  Age: 76 Year
  Sex: Female

DRUGS (4)
  1. BONIVA [Suspect]
     Indication: OSTEOPOROSIS
     Dosage: STRENGTH: 3 MG/3 ML.
     Route: 042
     Dates: start: 20090129, end: 20090129
  2. IDEOS [Concomitant]
     Indication: OSTEOPOROSIS
     Dosage: FORMULATION: CHW.TABLETS 500(1250)MG AND 400 IU.
     Route: 048
  3. FERRUM [Concomitant]
     Indication: ANAEMIA
     Dosage: DRUG: FERRUM NOS.
     Route: 048
  4. FILICINE [Concomitant]
     Indication: ANAEMIA
     Route: 048

REACTIONS (1)
  - COMA [None]
